FAERS Safety Report 6828817-4 (Version None)
Quarter: 2010Q3

REPORT INFORMATION
  Report Type: 
  Country: None (occurrence: None)
  Receive Date: 20100706
  Receipt Date: 20100624
  Transmission Date: 20110219
  Serious: Yes (Hospitalization)
  Sender: FDA-Public Use
  Company Number: 012066

PATIENT
  Sex: Female
  Weight: 58 kg

DRUGS (6)
  1. CERTOLIZUMAB PEGOL (CERTOLIZUMAB PEGOL) [Suspect]
     Indication: RHEUMATOID ARTHRITIS
     Dosage: 400 MG 1X/2 WEEKS SUBCUTANEOUS, 200 MG 1X/2 WEEKS SUBCUTANEOUS
     Route: 058
     Dates: start: 20051214, end: 20080206
  2. CERTOLIZUMAB PEGOL (CERTOLIZUMAB PEGOL) [Suspect]
     Indication: RHEUMATOID ARTHRITIS
     Dosage: 400 MG 1X/2 WEEKS SUBCUTANEOUS, 200 MG 1X/2 WEEKS SUBCUTANEOUS
     Route: 058
     Dates: start: 20080220, end: 20100512
  3. METHOTREXATE [Concomitant]
  4. DICLOFENAC SODIUM [Concomitant]
  5. FOLIC ACID [Concomitant]
  6. ENALAPRIL MALEATE [Concomitant]

REACTIONS (13)
  - ABSCESS [None]
  - CONDITION AGGRAVATED [None]
  - DISSEMINATED TUBERCULOSIS [None]
  - DRUG INEFFECTIVE [None]
  - GOITRE [None]
  - HYDROMETRA [None]
  - LEFT VENTRICULAR HYPERTROPHY [None]
  - PANCREATITIS CHRONIC [None]
  - PHARYNGITIS [None]
  - RHEUMATOID ARTHRITIS [None]
  - UPPER RESPIRATORY TRACT INFECTION [None]
  - UTERINE POLYP [None]
  - WEIGHT DECREASED [None]
